FAERS Safety Report 7711643-1 (Version None)
Quarter: 2011Q3

REPORT INFORMATION
  Report Type: 
  Country: None (occurrence: None)
  Receive Date: 20110826
  Receipt Date: 20110624
  Transmission Date: 20111222
  Serious: No
  Sender: FDA-Public Use
  Company Number: US-BRISTOL-MYERS SQUIBB COMPANY-15854847

PATIENT
  Age: 51 Year
  Sex: Male

DRUGS (1)
  1. ONGLYZA [Suspect]
     Dosage: RX NO 1819232-03431

REACTIONS (1)
  - RASH PAPULAR [None]
